FAERS Safety Report 9940846 (Version 3)
Quarter: 2014Q1

REPORT INFORMATION
  Report Type: Spontaneous
  Country: IT (occurrence: IT)
  Receive Date: 20140303
  Receipt Date: 20140318
  Transmission Date: 20141002
  Serious: Yes (Other)
  Sender: FDA-Public Use
  Company Number: PHHY2014IT025156

PATIENT
  Age: 65 Year
  Sex: Female

DRUGS (8)
  1. ZOMETA [Suspect]
     Indication: METASTASES TO BONE
     Dosage: 1 DF, QMO
     Route: 042
     Dates: start: 20130201, end: 20130701
  2. OPTINATE [Suspect]
     Indication: OSTEOPOROSIS
     Dosage: 2 MG, MONTHLY
     Route: 048
     Dates: start: 20030101, end: 20130801
  3. LUCEN [Concomitant]
     Dosage: 10 MG, UNK
     Route: 048
  4. EUTIROX [Concomitant]
     Dosage: 50 MG, UNK
     Route: 048
  5. CARVEDILOLO ACTAVIS [Concomitant]
     Dosage: 6.25 MG, UNK
  6. FEMARA [Concomitant]
     Dosage: 1 DF, UNK
  7. CACIT [Concomitant]
     Dosage: 1000 MG, UNK
  8. GARDENALE [Concomitant]
     Dosage: 50 MG, UNK

REACTIONS (1)
  - Osteonecrosis of jaw [Not Recovered/Not Resolved]
